FAERS Safety Report 11834652 (Version 1)
Quarter: 2015Q4

REPORT INFORMATION
  Report Type: Spontaneous
  Country: US (occurrence: US)
  Receive Date: 20151214
  Receipt Date: 20151214
  Transmission Date: 20160305
  Serious: Yes (Hospitalization)
  Sender: FDA-Public Use
  Company Number: US-ROCHE-1675526

PATIENT
  Age: 57 Year
  Sex: Male

DRUGS (21)
  1. ACYCLOVIR. [Concomitant]
     Active Substance: ACYCLOVIR
     Route: 048
  2. BACITRACIN/POLYMYXIN B SULFATE [Concomitant]
     Dosage: 1 APPLICATION (500-10 KG OINTMENT, BOTH EYES AS DIRECTED X30 DAYS.?APPLY AS DIRECTED TO LASHES AND L
     Route: 065
  3. ECONAZOLE NITRATE. [Concomitant]
     Active Substance: ECONAZOLE NITRATE
     Dosage: 1 APPLICATION, 1 % CREAM, AT BED TIME X30 DAYS.
     Route: 061
  4. SYNALAR [Concomitant]
     Active Substance: FLUOCINOLONE ACETONIDE
     Dosage: SOLUTION, 1 APPLICATION
     Route: 061
  5. DECADRON [Concomitant]
     Active Substance: DEXAMETHASONE
     Dosage: 0.5 MG/ 5 ML. ELIXIR
     Route: 048
  6. FISH OIL [Concomitant]
     Active Substance: FISH OIL
     Dosage: 500 MG CAPSULES TAKE 2.
     Route: 048
  7. CYCLOPHOSPHAMIDE. [Concomitant]
     Active Substance: CYCLOPHOSPHAMIDE
  8. CLINDAMYCIN [Concomitant]
     Active Substance: CLINDAMYCIN\CLINDAMYCIN PHOSPHATE
     Route: 061
  9. RITUXIMAB [Suspect]
     Active Substance: RITUXIMAB
     Indication: CHRONIC LYMPHOCYTIC LEUKAEMIA
     Route: 065
  10. VFEND [Concomitant]
     Active Substance: VORICONAZOLE
     Dosage: 60TABS/ 30 DAYS
     Route: 065
  11. ADVAIR HFA [Concomitant]
     Active Substance: FLUTICASONE PROPIONATE\SALMETEROL XINAFOATE
     Dosage: INHALATION
     Route: 065
  12. SODIUM CHLORIDE. [Concomitant]
     Active Substance: SODIUM CHLORIDE
     Dosage: 7 % INH SOL, VIAL-NEB, NEBULIZED TWICE A DAY
     Route: 065
  13. FLUDARABINE [Concomitant]
     Active Substance: FLUDARABINE PHOSPHATE
  14. VIAGRA [Concomitant]
     Active Substance: SILDENAFIL CITRATE
     Route: 048
  15. WARFARIN SODIUM. [Concomitant]
     Active Substance: WARFARIN SODIUM
     Route: 065
  16. LORAZEPAM. [Concomitant]
     Active Substance: LORAZEPAM
     Indication: ANXIETY
  17. PENICILLIN V POTASSIUM. [Concomitant]
     Active Substance: PENICILLIN V POTASSIUM
     Route: 048
  18. SODIUM CHLORIDE. [Concomitant]
     Active Substance: SODIUM CHLORIDE
     Dosage: 0.9 % VIAL-NEB, NEBULAIZED EVERY 6 HOURS
     Route: 065
  19. VINCRISTINE [Concomitant]
     Active Substance: VINCRISTINE
  20. LORAZEPAM. [Concomitant]
     Active Substance: LORAZEPAM
     Indication: NAUSEA
     Route: 048
  21. PREDNISOLONE. [Concomitant]
     Active Substance: PREDNISOLONE

REACTIONS (3)
  - Haemolytic anaemia [Recovered/Resolved]
  - Pyrexia [Recovered/Resolved]
  - Haemolysis [Recovered/Resolved]

NARRATIVE: CASE EVENT DATE: 20110909
